FAERS Safety Report 17964400 (Version 2)
Quarter: 2020Q3

REPORT INFORMATION
  Report Type: Spontaneous
  Country: SK (occurrence: SK)
  Receive Date: 20200630
  Receipt Date: 20200709
  Transmission Date: 20201103
  Serious: Yes (Other)
  Sender: FDA-Public Use
  Company Number: SK-ABBVIE-20K-260-3462199-00

PATIENT
  Age: 63 Year
  Sex: Female

DRUGS (1)
  1. ADALIMUMAB [Suspect]
     Active Substance: ADALIMUMAB
     Indication: CROHN^S DISEASE
     Route: 058
     Dates: start: 201806, end: 20180921

REACTIONS (7)
  - Pustular psoriasis [Recovered/Resolved]
  - Palmoplantar pustulosis [Recovered/Resolved]
  - Paradoxical psoriasis [Recovered/Resolved]
  - Folliculitis [Recovered/Resolved]
  - Immune-mediated adverse reaction [Recovered/Resolved]
  - Paradoxical drug reaction [Recovered/Resolved]
  - Hidradenitis [Recovered/Resolved]

NARRATIVE: CASE EVENT DATE: 2018
